FAERS Safety Report 6672904-0 (Version None)
Quarter: 2010Q2

REPORT INFORMATION
  Report Type: 
  Country: None (occurrence: None)
  Receive Date: 20100408
  Receipt Date: 20100330
  Transmission Date: 20101027
  Serious: Yes (Other)
  Sender: FDA-Public Use
  Company Number: PHHY2010US20546

PATIENT
  Sex: Female

DRUGS (1)
  1. FEMARA [Suspect]
     Indication: BREAST CANCER IN SITU
     Dosage: 2.5 MG, QD
     Route: 048
     Dates: start: 20090401

REACTIONS (2)
  - FEELING ABNORMAL [None]
  - PULMONARY FIBROSIS [None]
